FAERS Safety Report 11907899 (Version 3)
Quarter: 2016Q1

REPORT INFORMATION
  Report Type: Spontaneous
  Country: US (occurrence: US)
  Receive Date: 20160111
  Receipt Date: 20160119
  Transmission Date: 20160526
  Serious: No
  Sender: FDA-Public Use
  Company Number: US-ASTRAZENECA-2016SE02234

PATIENT
  Age: 70 Year
  Sex: Male
  Weight: 86.2 kg

DRUGS (3)
  1. NEXIUM 24HR [Suspect]
     Active Substance: ESOMEPRAZOLE MAGNESIUM
     Route: 048
  2. VALIUM [Suspect]
     Active Substance: DIAZEPAM
     Route: 065
  3. NEXIUM [Suspect]
     Active Substance: ESOMEPRAZOLE MAGNESIUM
     Route: 048

REACTIONS (4)
  - Musculoskeletal pain [Unknown]
  - Bone pain [Unknown]
  - Dizziness [Unknown]
  - Hypersensitivity [Unknown]
